FAERS Safety Report 5396364-5 (Version None)
Quarter: 2007Q3

REPORT INFORMATION
  Report Type: 
  Country: None (occurrence: None)
  Receive Date: 20070725
  Receipt Date: 20070717
  Transmission Date: 20080115
  Serious: Yes (Hospitalization)
  Sender: FDA-Public Use
  Company Number: NL-BAYER-200714154GDS

PATIENT
  Age: 46 Year
  Sex: Male

DRUGS (3)
  1. ASPIRIN [Suspect]
     Indication: CORONARY ARTERY DISEASE
     Route: 065
     Dates: start: 20010501
  2. CLOPIDOGREL [Suspect]
     Indication: CORONARY ARTERY DISEASE
     Route: 065
     Dates: start: 20010501, end: 20050501
  3. CLOPIDOGREL [Suspect]
     Route: 065
     Dates: start: 20050101

REACTIONS (4)
  - BLOOD CREATINE PHOSPHOKINASE INCREASED [None]
  - EJECTION FRACTION DECREASED [None]
  - MYOCARDIAL INFARCTION [None]
  - THROMBOSIS IN DEVICE [None]
